FAERS Safety Report 12874993 (Version 4)
Quarter: 2017Q1

REPORT INFORMATION
  Report Type: Spontaneous
  Country: DE (occurrence: DE)
  Receive Date: 20161023
  Receipt Date: 20170120
  Transmission Date: 20170428
  Serious: Yes (Other)
  Sender: FDA-Public Use
  Company Number: DE-AMGEN-DEUSP2016143287

PATIENT
  Age: 58 Year
  Sex: Female

DRUGS (9)
  1. LYRICA [Concomitant]
     Active Substance: PREGABALIN
     Dosage: 50 MG, BID
  2. FERINJECT [Concomitant]
     Active Substance: FERRIC CARBOXYMALTOSE
     Indication: IRON DEFICIENCY ANAEMIA
     Dosage: 200 MG, UNK
  3. PANTOZOL [Concomitant]
     Active Substance: PANTOPRAZOLE SODIUM
     Dosage: 20 MG, AS NECESSARY
  4. MARCUMAR [Concomitant]
     Active Substance: PHENPROCOUMON
  5. EZETROL [Concomitant]
     Active Substance: EZETIMIBE
     Dosage: 10 MG, UNK
  6. REPATHA [Suspect]
     Active Substance: EVOLOCUMAB
     Indication: TYPE IIA HYPERLIPIDAEMIA
     Dosage: 140 MG, ONCE IN EVERY 14 DAYS
     Route: 058
     Dates: start: 20160411, end: 201608
  7. ATORVASTATIN 1 A PHARMA [Concomitant]
     Dosage: 40 MG, QD
  8. ENALAPRIL 1 A PHARMA [Concomitant]
     Dosage: HALF TABLET, QD
  9. BISOHEXAL [Concomitant]
     Active Substance: BISOPROLOL FUMARATE
     Dosage: 5 MG, QD (HALF TABLET)

REACTIONS (6)
  - Haemoglobin decreased [Not Recovered/Not Resolved]
  - Nausea [Unknown]
  - Apathy [Not Recovered/Not Resolved]
  - Fatigue [Not Recovered/Not Resolved]
  - Haemolysis [Not Recovered/Not Resolved]
  - Heart valve replacement [Unknown]

NARRATIVE: CASE EVENT DATE: 201607
